FAERS Safety Report 9102935 (Version 4)
Quarter: 2014Q3

REPORT INFORMATION
  Report Type: Spontaneous
  Country: SE (occurrence: SE)
  Receive Date: 20130219
  Receipt Date: 20140923
  Transmission Date: 20150326
  Serious: Yes (Hospitalization, Other)
  Sender: FDA-Public Use
  Company Number: SE-PFIZER INC-2013060733

PATIENT
  Age: 31 Year
  Sex: Female
  Weight: 70 kg

DRUGS (9)
  1. OXYCONTIN [Concomitant]
     Active Substance: OXYCODONE HYDROCHLORIDE
     Indication: CERVICAL RADICULOPATHY
  2. PANODIL [Concomitant]
     Active Substance: ACETAMINOPHEN
     Indication: CERVICAL RADICULOPATHY
     Dosage: 1000 MG, 4X/DAY
     Dates: start: 20111106, end: 20120606
  3. LYRICA [Suspect]
     Active Substance: PREGABALIN
     Indication: CERVICAL RADICULOPATHY
     Dosage: 150 MG, 2X/DAY
     Route: 048
     Dates: start: 20111121, end: 20111210
  4. OXYCONTIN [Concomitant]
     Active Substance: OXYCODONE HYDROCHLORIDE
     Indication: PAIN
     Dosage: 10 MG, 2X/DAY
     Dates: start: 20111106, end: 20120606
  5. LYRICA [Suspect]
     Active Substance: PREGABALIN
     Indication: NEURALGIA
  6. LYRICA [Suspect]
     Active Substance: PREGABALIN
     Indication: PAIN
  7. OXYCODONE [Concomitant]
     Active Substance: OXYCODONE
     Dosage: UNK
  8. LYRICA [Suspect]
     Active Substance: PREGABALIN
     Indication: INTERVERTEBRAL DISC PROTRUSION
  9. PANODIL [Concomitant]
     Active Substance: ACETAMINOPHEN
     Indication: PAIN

REACTIONS (7)
  - Restlessness [Unknown]
  - Psychotic disorder [Recovered/Resolved]
  - Hallucination [Recovered/Resolved]
  - Anxiety [Recovered/Resolved]
  - Euphoric mood [Recovered/Resolved]
  - Delusion [Recovered/Resolved]
  - Formication [Unknown]

NARRATIVE: CASE EVENT DATE: 20111205
